FAERS Safety Report 7078426-X (Version None)
Quarter: 2010Q4

REPORT INFORMATION
  Report Type: 
  Country: None (occurrence: None)
  Receive Date: 20101101
  Receipt Date: 20101101
  Transmission Date: 20110411
  Serious: No
  Sender: FDA-Public Use
  Company Number: None

PATIENT
  Age: 60 Year
  Sex: Male
  Weight: 91.5 kg

DRUGS (4)
  1. BUPROPION [Suspect]
     Indication: DEPRESSION
     Dosage: 200 MG BID PO
     Route: 048
     Dates: start: 20011031, end: 20101021
  2. BUPROPION [Suspect]
     Indication: POST-TRAUMATIC STRESS DISORDER
     Dosage: 200 MG BID PO
     Route: 048
     Dates: start: 20011031, end: 20101021
  3. BUPROPION [Suspect]
     Indication: DEPRESSION
     Dosage: 200 MG BID PO
     Route: 048
     Dates: end: 20101025
  4. BUPROPION [Suspect]
     Indication: POST-TRAUMATIC STRESS DISORDER
     Dosage: 200 MG BID PO
     Route: 048
     Dates: end: 20101025

REACTIONS (2)
  - DRUG INEFFECTIVE [None]
  - PRODUCT SUBSTITUTION ISSUE [None]
